FAERS Safety Report 12016957 (Version 1)
Quarter: 2016Q1

REPORT INFORMATION
  Report Type: Spontaneous
  Country: US (occurrence: US)
  Receive Date: 20160205
  Receipt Date: 20160205
  Transmission Date: 20160526
  Serious: No
  Sender: FDA-Public Use
  Company Number: US-AMGEN-USASP2016002450

PATIENT
  Age: 15 Year
  Sex: Male

DRUGS (1)
  1. NEULASTA [Suspect]
     Active Substance: PEGFILGRASTIM
     Indication: OSTEOSARCOMA
     Dosage: 6 MG, ONCE A MONTH
     Route: 065

REACTIONS (3)
  - Device issue [Unknown]
  - Drug dose omission [Unknown]
  - Off label use [Unknown]
